FAERS Safety Report 7238483-4 (Version None)
Quarter: 2011Q1

REPORT INFORMATION
  Report Type: 
  Country: None (occurrence: None)
  Receive Date: 20110121
  Receipt Date: 20110114
  Transmission Date: 20110831
  Serious: Yes (Other)
  Sender: FDA-Public Use
  Company Number: DE-JNJFOC-20101205626

PATIENT
  Sex: Female
  Weight: 65 kg

DRUGS (11)
  1. CAELYX [Suspect]
     Indication: UTERINE CANCER
     Route: 042
  2. ALLOPURINOL [Concomitant]
  3. CAELYX [Suspect]
     Route: 042
  4. METOPROLOL TARTRATE [Concomitant]
  5. CAELYX [Suspect]
     Route: 042
  6. CAELYX [Suspect]
     Route: 042
  7. GLYBURIDE [Concomitant]
  8. CAELYX [Suspect]
     Indication: METASTASES TO LUNG
     Route: 042
  9. CAELYX [Suspect]
     Route: 042
  10. LISINOPRIL [Concomitant]
  11. DEXAMETHASONE [Concomitant]
     Route: 065

REACTIONS (3)
  - TREMOR [None]
  - DYSPNOEA [None]
  - INFUSION RELATED REACTION [None]
